FAERS Safety Report 16939652 (Version 1)
Quarter: 2019Q4

REPORT INFORMATION
  Report Type: Report from Study
  Country: FR (occurrence: FR)
  Receive Date: 20191021
  Receipt Date: 20191021
  Transmission Date: 20200122
  Serious: Yes (Death)
  Sender: FDA-Public Use
  Company Number: FR-ROCHE-1166949

PATIENT
  Age: 74 Year
  Sex: Female
  Weight: 45 kg

DRUGS (4)
  1. BENDAMUSTINE HYDROCHLORIDE. [Suspect]
     Active Substance: BENDAMUSTINE HYDROCHLORIDE
     Indication: NON-HODGKIN^S LYMPHOMA
     Route: 042
     Dates: start: 20110516, end: 20110616
  2. RITUXIMAB. [Suspect]
     Active Substance: RITUXIMAB
     Indication: B-CELL LYMPHOMA
     Route: 042
     Dates: start: 20110516, end: 20111128
  3. RITUXIMAB. [Suspect]
     Active Substance: RITUXIMAB
     Route: 042
  4. BENDAMUSTINE HYDROCHLORIDE. [Suspect]
     Active Substance: BENDAMUSTINE HYDROCHLORIDE
     Indication: B-CELL LYMPHOMA
     Dosage: INDUCTION PHASE: TWO COURSES FROM DAYS 1 TO 2 AND DAYS 29 TO 30
     Route: 042

REACTIONS (4)
  - Pneumonia pseudomonal [Fatal]
  - Febrile bone marrow aplasia [Fatal]
  - Pseudomonas infection [Fatal]
  - Septic shock [Fatal]

NARRATIVE: CASE EVENT DATE: 20111223
